FAERS Safety Report 25878602 (Version 3)
Quarter: 2025Q4

REPORT INFORMATION
  Report Type: Spontaneous
  Country: EU (occurrence: EU)
  Receive Date: 20251003
  Receipt Date: 20251121
  Transmission Date: 20260118
  Serious: Yes (Hospitalization)
  Sender: VERTEX
  Company Number: EU-VERTEX PHARMACEUTICALS-2025-016132

PATIENT
  Age: 15 Year
  Sex: Male
  Weight: 57 kg

DRUGS (4)
  1. ELEXACAFTOR\IVACAFTOR\TEZACAFTOR [Suspect]
     Active Substance: ELEXACAFTOR\IVACAFTOR\TEZACAFTOR
     Indication: Cystic fibrosis
     Dosage: TWO TABLETS DAILY IN MORNING
     Route: 048
     Dates: start: 20220920
  2. KALYDECO [Suspect]
     Active Substance: IVACAFTOR
     Indication: Cystic fibrosis
     Dosage: ONE TABLET DAILY
     Route: 048
     Dates: start: 20220920
  3. URSODIOL [Concomitant]
     Active Substance: URSODIOL
     Route: 048
  4. Pankreal [Concomitant]
     Route: 048

REACTIONS (2)
  - Duodenal ulcer [Recovered/Resolved]
  - Erosive duodenitis [Recovered/Resolved]

NARRATIVE: CASE EVENT DATE: 20250917
